FAERS Safety Report 4772195-1 (Version None)
Quarter: 2005Q3

REPORT INFORMATION
  Report Type: 
  Country: None (occurrence: None)
  Receive Date: 20050919
  Receipt Date: 20041110
  Transmission Date: 20060218
  Serious: No
  Sender: FDA-Public Use
  Company Number: US-BRISTOL-MYERS SQUIBB COMPANY-12762340

PATIENT
  Age: 46 Year
  Sex: Female

DRUGS (2)
  1. DEFINITY [Suspect]
     Indication: CHEST PAIN
     Route: 040
     Dates: start: 20041110
  2. DEFINITY [Suspect]
     Indication: CARDIAC STRESS TEST
     Route: 040
     Dates: start: 20041110

REACTIONS (3)
  - PRURITUS [None]
  - RASH [None]
  - THROAT IRRITATION [None]
